FAERS Safety Report 4803367-5 (Version None)
Quarter: 2005Q4

REPORT INFORMATION
  Report Type: 
  Country: None (occurrence: None)
  Receive Date: 20051013
  Receipt Date: 20050930
  Transmission Date: 20060501
  Serious: Yes (Hospitalization, Other)
  Sender: FDA-Public Use
  Company Number: 2005PV002658

PATIENT
  Age: 54 Year
  Sex: Male
  Weight: 200 kg

DRUGS (11)
  1. BYETTA [Suspect]
     Indication: DIABETES MELLITUS NON-INSULIN-DEPENDENT
     Dosage: 5 MCG; BID; SC; 10 MCG; BID; SC
     Route: 058
     Dates: start: 20050824, end: 20050901
  2. BYETTA [Suspect]
     Indication: DIABETES MELLITUS NON-INSULIN-DEPENDENT
     Dosage: 5 MCG; BID; SC; 10 MCG; BID; SC
     Route: 058
     Dates: start: 20050901
  3. HYZAAR [Suspect]
     Indication: HYPERTENSION
     Dosage: 10 MG; PO
     Route: 048
  4. LAMICTAL [Suspect]
     Indication: DRUG USE FOR UNKNOWN INDICATION
     Dosage: 100 MG; QD
  5. AMARYL [Concomitant]
  6. GLUCOPHAGE [Concomitant]
  7. FUROSEMIDE [Concomitant]
  8. LEXAPRO [Concomitant]
  9. IBUPROFEN [Concomitant]
  10. ABILIFY [Concomitant]
  11. VICODIN [Concomitant]

REACTIONS (1)
  - PANCREATITIS ACUTE [None]
